FAERS Safety Report 7810735-6 (Version None)
Quarter: 2011Q4

REPORT INFORMATION
  Report Type: 
  Country: None (occurrence: None)
  Receive Date: 20111006
  Receipt Date: 20110926
  Transmission Date: 20120403
  Serious: Yes (Hospitalization)
  Sender: FDA-Public Use
  Company Number: 2011SP003294

PATIENT
  Age: 31 Year
  Sex: Male

DRUGS (9)
  1. LATUDA [Suspect]
     Dosage: 40 MG; ORAL;  80 MG; ORAL
     Route: 048
     Dates: start: 20110308, end: 20110314
  2. LATUDA [Suspect]
     Dosage: 40 MG; ORAL;  80 MG; ORAL
     Route: 048
     Dates: start: 20110315, end: 20110627
  3. SEROQUEL [Concomitant]
  4. TOPAMAX [Concomitant]
  5. DEPAKOTE [Concomitant]
  6. PAXIL [Concomitant]
  7. RISPERDAL [Concomitant]
  8. ABILIFY [Concomitant]
  9. KLONOPIN [Concomitant]

REACTIONS (2)
  - PARANOIA [None]
  - SUICIDAL IDEATION [None]
